FAERS Safety Report 24432199 (Version 4)
Quarter: 2025Q3

REPORT INFORMATION
  Report Type: Report from Study
  Country: CA (occurrence: CA)
  Receive Date: 20241014
  Receipt Date: 20250811
  Transmission Date: 20251020
  Serious: Yes (Hospitalization, Other)
  Sender: TAKEDA
  Company Number: CA-TAKEDA-2023TUS063987

PATIENT
  Sex: Male
  Weight: 125 kg

DRUGS (15)
  1. HUMAN IMMUNOGLOBULIN G [Suspect]
     Active Substance: HUMAN IMMUNOGLOBULIN G
     Indication: Primary immunodeficiency syndrome
     Dosage: 9 GRAM, 1/WEEK
     Dates: start: 20230113
  2. HUMAN IMMUNOGLOBULIN G [Suspect]
     Active Substance: HUMAN IMMUNOGLOBULIN G
     Dosage: UNK UNK, 1/WEEK
  3. HUMAN IMMUNOGLOBULIN G [Suspect]
     Active Substance: HUMAN IMMUNOGLOBULIN G
     Dosage: 9 GRAM, 1/WEEK
  4. HUMAN IMMUNOGLOBULIN G [Suspect]
     Active Substance: HUMAN IMMUNOGLOBULIN G
     Dosage: 9 GRAM, 1/WEEK
     Dates: end: 202411
  5. ASPIRIN [Concomitant]
     Active Substance: ASPIRIN
  6. FUROSEMIDE [Concomitant]
     Active Substance: FUROSEMIDE
  7. HYDROMORPHONE [Concomitant]
     Active Substance: HYDROMORPHONE
  8. INSULIN NOS [Concomitant]
     Active Substance: INSULIN NOS
  9. LATANOPROST [Concomitant]
     Active Substance: LATANOPROST
  10. LEVOTHYROXINE [Concomitant]
     Active Substance: LEVOTHYROXINE
  11. METOCLOPRAMIDE [Concomitant]
     Active Substance: METOCLOPRAMIDE
  12. PRAMIPEXOLE [Concomitant]
     Active Substance: PRAMIPEXOLE
  13. PREGABALIN [Concomitant]
     Active Substance: PREGABALIN
  14. RABEPRAZOLE [Concomitant]
     Active Substance: RABEPRAZOLE
  15. UBIDECARENONE [Concomitant]
     Active Substance: UBIDECARENONE

REACTIONS (9)
  - IgG deficiency [Unknown]
  - Sinusitis bacterial [Not Recovered/Not Resolved]
  - Mesenteric artery stenosis [Unknown]
  - Angiopathy [Unknown]
  - Cardiac arrest [Unknown]
  - Dyspnoea exertional [Unknown]
  - Coronary artery disease [Unknown]
  - Application site rash [Unknown]
  - Diabetic foot infection [Unknown]
